FAERS Safety Report 10049114 (Version 1)
Quarter: 2014Q2

REPORT INFORMATION
  Report Type: Report from Study
  Country: FR (occurrence: FR)
  Receive Date: 20140401
  Receipt Date: 20140401
  Transmission Date: 20141212
  Serious: Yes (Hospitalization)
  Sender: FDA-Public Use
  Company Number: FR-ROCHE-1369763

PATIENT
  Age: 59 Year
  Sex: Female

DRUGS (14)
  1. METHOTREXATE [Concomitant]
     Route: 065
  2. RITUXIMAB [Suspect]
     Indication: RHEUMATOID ARTHRITIS
     Dosage: DAY 1.
     Route: 041
     Dates: start: 20070123
  3. RITUXIMAB [Suspect]
     Dosage: DAY 15
     Route: 041
     Dates: start: 20070206
  4. RITUXIMAB [Suspect]
     Dosage: DAY 1
     Route: 041
     Dates: start: 20070803
  5. RITUXIMAB [Suspect]
     Dosage: DAY 15.
     Route: 041
     Dates: start: 20070817
  6. RITUXIMAB [Suspect]
     Dosage: DAY 1
     Route: 041
     Dates: start: 20080214
  7. RITUXIMAB [Suspect]
     Dosage: DAY 15
     Route: 041
     Dates: start: 20080303
  8. RITUXIMAB [Suspect]
     Dosage: DAY 1.
     Route: 041
     Dates: start: 20090205
  9. RITUXIMAB [Suspect]
     Dosage: DAY 15.
     Route: 041
     Dates: start: 20090225
  10. RITUXIMAB [Suspect]
     Dosage: DAY 1
     Route: 041
     Dates: start: 20090901
  11. RITUXIMAB [Suspect]
     Dosage: DAY 15
     Route: 041
     Dates: start: 20090915
  12. ROACTEMRA [Suspect]
     Indication: RHEUMATOID ARTHRITIS
     Route: 065
     Dates: start: 20100113
  13. CORTANCYL [Concomitant]
     Route: 065
  14. CORTANCYL [Concomitant]
     Route: 065

REACTIONS (6)
  - Ankle arthroplasty [Recovered/Resolved]
  - Fall [Unknown]
  - Cystitis [Recovered/Resolved]
  - Melanoderma [Recovered/Resolved]
  - Sleep disorder [Recovered/Resolved]
  - Hyperkeratosis [Unknown]
